FAERS Safety Report 7186879-1 (Version None)
Quarter: 2010Q4

REPORT INFORMATION
  Report Type: 
  Country: None (occurrence: None)
  Receive Date: 20101222
  Receipt Date: 20101215
  Transmission Date: 20110411
  Serious: Yes (Hospitalization)
  Sender: FDA-Public Use
  Company Number: Z0006898A

PATIENT
  Age: 30 Year
  Sex: Male
  Weight: 77.5 kg

DRUGS (1)
  1. FLUTICASONE FUROATE [Suspect]
     Indication: ASTHMA
     Route: 055
     Dates: start: 20100304

REACTIONS (6)
  - ABDOMINAL PAIN [None]
  - CROHN'S DISEASE [None]
  - MENINGITIS ASEPTIC [None]
  - NAUSEA [None]
  - PLEURISY [None]
  - PNEUMONIA [None]
